FAERS Safety Report 20494222 (Version 1)
Quarter: 2022Q1

REPORT INFORMATION
  Report Type: Report from Study
  Country: MX (occurrence: MX)
  Receive Date: 20220221
  Receipt Date: 20220221
  Transmission Date: 20220424
  Serious: Yes (Other)
  Sender: FDA-Public Use
  Company Number: MX-ABBOTT-2022A-1345872

PATIENT
  Age: 13 Year
  Sex: Female
  Weight: 42 kg

DRUGS (3)
  1. EPIVAL [Suspect]
     Active Substance: DIVALPROEX SODIUM
     Indication: Epilepsy
     Route: 048
     Dates: start: 2018, end: 202110
  2. EPIVAL [Suspect]
     Active Substance: DIVALPROEX SODIUM
     Dosage: DAILY DOSE 655 MILLIGRAM, 2 - 0 - 3
     Route: 048
     Dates: start: 202111
  3. TAMLET S [Concomitant]
     Indication: Product used for unknown indication
     Dosage: DAILY DOSE 1000 MILLIGRAM, 0.5 - 0 - 1.5
     Route: 048

REACTIONS (5)
  - Epilepsy [Recovered/Resolved]
  - Poor quality sleep [Unknown]
  - Tension [Unknown]
  - Stress [Unknown]
  - Anxiety [Unknown]

NARRATIVE: CASE EVENT DATE: 20210601
